FAERS Safety Report 9361619 (Version 2)
Quarter: 2013Q3

REPORT INFORMATION
  Report Type: Spontaneous
  Country: US (occurrence: US)
  Receive Date: 20130621
  Receipt Date: 20130729
  Transmission Date: 20140515
  Serious: No
  Sender: FDA-Public Use
  Company Number: US-PFIZER INC-2013184877

PATIENT
  Age: 67 Year
  Sex: Female

DRUGS (10)
  1. XELJANZ [Suspect]
     Indication: RHEUMATOID ARTHRITIS
     Dosage: 5 MG, 2X/DAY
     Route: 048
     Dates: start: 20130320, end: 20130711
  2. XELJANZ [Suspect]
     Indication: POLYARTHRITIS
  3. PREDNISONE [Concomitant]
     Dosage: 10 MG, DAILY
  4. HYDROCHLOROTHIAZIDE [Concomitant]
     Dosage: UNK
  5. PREMARIN [Concomitant]
     Dosage: 1.25 MG, DAILY
  6. LYRICA [Concomitant]
     Dosage: UNK
  7. FOLIC ACID [Concomitant]
     Dosage: 1 MG, DAILY
  8. NYSTATIN [Concomitant]
     Dosage: UNK
  9. VICODIN [Concomitant]
     Dosage: UNK
  10. MTX [Concomitant]
     Dosage: UNK

REACTIONS (2)
  - Fatigue [Unknown]
  - Tooth disorder [Unknown]
